FAERS Safety Report 23634504 (Version 1)
Quarter: 2024Q1

REPORT INFORMATION
  Report Type: Report from Study
  Country: DE (occurrence: DE)
  Receive Date: 20240315
  Receipt Date: 20240315
  Transmission Date: 20240409
  Serious: Yes (Hospitalization, Other)
  Sender: FDA-Public Use
  Company Number: DE-ABBVIE-5676771

PATIENT
  Age: 81 Year
  Sex: Female

DRUGS (1)
  1. HUMIRA [Suspect]
     Active Substance: ADALIMUMAB
     Indication: Crohn^s disease
     Route: 058
     Dates: start: 20161227

REACTIONS (3)
  - Spinal operation [Recovering/Resolving]
  - Cardiac arrest [Recovered/Resolved]
  - Urinary bladder toxicity [Recovered/Resolved]

NARRATIVE: CASE EVENT DATE: 20230901
